FAERS Safety Report 12859374 (Version 1)
Quarter: 2016Q4

REPORT INFORMATION
  Report Type: Spontaneous
  Country: US (occurrence: US)
  Receive Date: 20161018
  Receipt Date: 20161018
  Transmission Date: 20170207
  Serious: Yes (Hospitalization)
  Sender: FDA-Public Use
  Company Number: US-IPCA LABORATORIES LIMITED-IPC201610-000887

PATIENT
  Age: 90 Year
  Sex: Male

DRUGS (21)
  1. WARFARIN [Suspect]
     Active Substance: WARFARIN
     Route: 048
  2. WARFARIN [Suspect]
     Active Substance: WARFARIN
     Indication: DEEP VEIN THROMBOSIS
     Route: 048
  3. WARFARIN [Suspect]
     Active Substance: WARFARIN
     Route: 048
  4. WARFARIN [Suspect]
     Active Substance: WARFARIN
     Route: 048
  5. WARFARIN [Suspect]
     Active Substance: WARFARIN
     Route: 048
  6. GEMCITABINE [Suspect]
     Active Substance: GEMCITABINE\GEMCITABINE HYDROCHLORIDE
  7. GEMCITABINE [Suspect]
     Active Substance: GEMCITABINE\GEMCITABINE HYDROCHLORIDE
     Indication: CHEMOTHERAPY
     Route: 043
  8. CALCIUM CARBONATE. [Concomitant]
     Active Substance: CALCIUM CARBONATE
  9. BACILLIUS CALMETTE-GU?RIN [Concomitant]
  10. TAMSULOSIN [Concomitant]
     Active Substance: TAMSULOSIN
     Route: 048
  11. WARFARIN [Suspect]
     Active Substance: WARFARIN
     Route: 048
  12. WARFARIN [Suspect]
     Active Substance: WARFARIN
     Route: 048
  13. WARFARIN [Suspect]
     Active Substance: WARFARIN
     Route: 048
  14. WARFARIN [Suspect]
     Active Substance: WARFARIN
     Route: 048
  15. WARFARIN [Suspect]
     Active Substance: WARFARIN
     Route: 048
  16. WARFARIN [Suspect]
     Active Substance: WARFARIN
     Route: 048
  17. WARFARIN [Suspect]
     Active Substance: WARFARIN
     Route: 048
  18. TROSPIUM [Concomitant]
     Active Substance: TROSPIUM
     Route: 048
  19. CHOLECALCIFEROL [Concomitant]
     Active Substance: CHOLECALCIFEROL
  20. CARBOPLATIN. [Concomitant]
     Active Substance: CARBOPLATIN
  21. WARFARIN [Suspect]
     Active Substance: WARFARIN
     Route: 048

REACTIONS (4)
  - International normalised ratio increased [Recovered/Resolved]
  - Muscle haemorrhage [Recovered/Resolved]
  - Drug interaction [Unknown]
  - Hydronephrosis [Unknown]
